FAERS Safety Report 7423702-1 (Version None)
Quarter: 2011Q2

REPORT INFORMATION
  Report Type: 
  Country: None (occurrence: None)
  Receive Date: 20110419
  Receipt Date: 20110323
  Transmission Date: 20111010
  Serious: No
  Sender: FDA-Public Use
  Company Number: US-B.I. PHARMACEUTICALS,INC./RIDGEFIELD-2011-BP-09007BP

PATIENT
  Sex: Male

DRUGS (7)
  1. CRESTOR [Concomitant]
     Indication: BLOOD CHOLESTEROL INCREASED
  2. PRADAXA [Suspect]
     Indication: ATRIAL FIBRILLATION
     Dosage: 300 MG
     Route: 048
     Dates: start: 20110101
  3. TOPROL-XL [Concomitant]
     Indication: HYPERTENSION
  4. ASPIRIN [Concomitant]
  5. PROCARDIA [Concomitant]
     Indication: ATRIAL FIBRILLATION
  6. WATER PILL [Concomitant]
     Indication: OEDEMA PERIPHERAL
     Dates: start: 20110301
  7. MULTAQ [Concomitant]
     Indication: CEREBROVASCULAR ACCIDENT PROPHYLAXIS
     Dosage: 400 MG

REACTIONS (1)
  - OEDEMA PERIPHERAL [None]
